FAERS Safety Report 18186652 (Version 1)
Quarter: 2020Q3

REPORT INFORMATION
  Report Type: Spontaneous
  Country: US (occurrence: US)
  Receive Date: 20200824
  Receipt Date: 20200824
  Transmission Date: 20201103
  Serious: Yes (Hospitalization)
  Sender: FDA-Public Use
  Company Number: None

PATIENT
  Age: 55 Year
  Sex: Male

DRUGS (1)
  1. POSACONAZOLE [Suspect]
     Active Substance: POSACONAZOLE
     Route: 048
     Dates: start: 20200714

REACTIONS (7)
  - Platelet transfusion [None]
  - Leukopenia [None]
  - Thrombocytopenia [None]
  - Neutropenia [None]
  - Blood magnesium decreased [None]
  - Pain [None]
  - Hypokalaemia [None]

NARRATIVE: CASE EVENT DATE: 20200817
